FAERS Safety Report 5589822-1 (Version None)
Quarter: 2008Q1

REPORT INFORMATION
  Report Type: 
  Country: None (occurrence: None)
  Receive Date: 20080110
  Receipt Date: 20080110
  Transmission Date: 20080703
  Serious: Yes (Hospitalization)
  Sender: FDA-Public Use
  Company Number: None

PATIENT
  Sex: Male
  Weight: 87.0906 kg

DRUGS (1)
  1. PACLITAXEL [Suspect]
     Indication: METASTATIC NEOPLASM
     Dosage: 400GM  Q21D    IV DRIP
     Route: 041
     Dates: start: 20071227, end: 20071227

REACTIONS (5)
  - FLUSHING [None]
  - INFUSION RELATED REACTION [None]
  - MYOCARDIAL INFARCTION [None]
  - VERTIGO [None]
  - VOMITING [None]
